FAERS Safety Report 4534684-4 (Version None)
Quarter: 2004Q4

REPORT INFORMATION
  Report Type: 
  Country: None (occurrence: None)
  Receive Date: 20041222
  Receipt Date: 20030703
  Transmission Date: 20050328
  Serious: No
  Sender: FDA-Public Use
  Company Number: US-BRISTOL-MYERS SQUIBB COMPANY-12317541

PATIENT
  Age: 77 Year
  Sex: Female
  Weight: 62 kg

DRUGS (12)
  1. PRAVACHOL [Suspect]
     Indication: BLOOD CHOLESTEROL INCREASED
     Route: 048
  2. GLUCOPHAGE [Concomitant]
  3. COZAAR [Concomitant]
  4. PLENDIL [Concomitant]
  5. FOSAMAX [Concomitant]
  6. ASPIRIN [Concomitant]
  7. MULTIVITAMIN [Concomitant]
  8. CALTRATE VITAMINE D3 [Concomitant]
  9. CALCIUM [Concomitant]
  10. FLAXSEED [Concomitant]
  11. MAGNESIUM [Concomitant]
  12. CHROMIUM PICOLINATE [Concomitant]

REACTIONS (1)
  - MUSCLE CRAMP [None]
